FAERS Safety Report 8339426-2 (Version None)
Quarter: 2012Q2

REPORT INFORMATION
  Report Type: 
  Country: None (occurrence: None)
  Receive Date: 20120507
  Receipt Date: 20120427
  Transmission Date: 20120825
  Serious: No
  Sender: FDA-Public Use
  Company Number: US-BAYER-2012-042076

PATIENT
  Age: 73 Year
  Sex: Male
  Weight: 60.771 kg

DRUGS (1)
  1. NAPROXEN SODIUM [Suspect]
     Indication: ANALGESIC THERAPY
     Dosage: 1 DF, PRN, BOTTLE COUNT 32S
     Route: 048
     Dates: start: 20120425

REACTIONS (4)
  - ORAL PAIN [None]
  - MOUTH INJURY [None]
  - GINGIVAL INJURY [None]
  - ORAL DISCOMFORT [None]
